FAERS Safety Report 9270221 (Version 4)
Quarter: 2014Q2

REPORT INFORMATION
  Report Type: Spontaneous
  Country: JP (occurrence: JP)
  Receive Date: 20130503
  Receipt Date: 20140612
  Transmission Date: 20141212
  Serious: Yes (Life-Threatening, Hospitalization)
  Sender: FDA-Public Use
  Company Number: JP-GLAXOSMITHKLINE-B0888703A

PATIENT
  Age: 40 Year
  Sex: Male

DRUGS (2)
  1. LAMICTAL [Suspect]
     Indication: BIPOLAR DISORDER
     Dosage: 100MG TWICE PER DAY
     Route: 048
     Dates: start: 20130226, end: 20130307
  2. ROZEREM [Concomitant]
     Indication: INSOMNIA
     Dosage: 8MG PER DAY
     Route: 048
     Dates: start: 20130226, end: 20130307

REACTIONS (17)
  - Stevens-Johnson syndrome [Recovered/Resolved]
  - Neuropathy peripheral [Recovering/Resolving]
  - Erythema multiforme [Unknown]
  - Hypoaesthesia [Unknown]
  - Ocular hyperaemia [Unknown]
  - Erythema of eyelid [Unknown]
  - Eye discharge [Unknown]
  - Lip erosion [Unknown]
  - Oral mucosa erosion [Unknown]
  - Rash macular [Unknown]
  - Skin degenerative disorder [Unknown]
  - Epidermal necrosis [Unknown]
  - Lymphocytic infiltration [Unknown]
  - Eosinophil count increased [Unknown]
  - Rash [Unknown]
  - Erythema [Unknown]
  - Vulval disorder [Unknown]
